FAERS Safety Report 4799717-9 (Version None)
Quarter: 2005Q4

REPORT INFORMATION
  Report Type: 
  Country: None (occurrence: None)
  Receive Date: 20051006
  Receipt Date: 20051006
  Transmission Date: 20060501
  Serious: Yes (Hospitalization)
  Sender: FDA-Public Use
  Company Number: None

PATIENT
  Age: 74 Year
  Sex: Female
  Weight: 61.1 kg

DRUGS (1)
  1. NESIRITIDE [Suspect]
     Indication: CARDIAC FAILURE CONGESTIVE
     Dosage: 20ML BOLUS AND 6ML INFUSION
     Route: 040
     Dates: start: 20041028

REACTIONS (3)
  - BLOOD PRESSURE DECREASED [None]
  - HEART RATE INCREASED [None]
  - MYOCARDIAL INFARCTION [None]
